FAERS Safety Report 4954160-4 (Version None)
Quarter: 2006Q1

REPORT INFORMATION
  Report Type: 
  Country: None (occurrence: None)
  Receive Date: 20060321
  Receipt Date: 20060308
  Transmission Date: 20060701
  Serious: Yes (Other)
  Sender: FDA-Public Use
  Company Number: 13669

PATIENT
  Age: 19 Year
  Sex: Female

DRUGS (1)
  1. PARVOLEX [Suspect]
     Indication: POISONING
     Dosage: 150 MG DAILY PO
     Route: 048
     Dates: start: 20051101

REACTIONS (2)
  - PAIN [None]
  - PERIORBITAL OEDEMA [None]
